FAERS Safety Report 8141466-3 (Version None)
Quarter: 2012Q1

REPORT INFORMATION
  Report Type: 
  Country: None (occurrence: None)
  Receive Date: 20120216
  Receipt Date: 20120215
  Transmission Date: 20120608
  Serious: Yes (Hospitalization)
  Sender: FDA-Public Use
  Company Number: PHFR2011IE05366

PATIENT
  Sex: Male

DRUGS (6)
  1. HALOPERIDOL [Concomitant]
     Route: 030
  2. CLOPIXOL ACUPHASE [Concomitant]
     Route: 030
  3. CLOZARIL [Suspect]
     Route: 048
     Dates: start: 20110922
  4. CLOZARIL [Suspect]
     Indication: SCHIZOPHRENIA
     Dosage: 775 MG, UNK
     Route: 048
     Dates: start: 20021227
  5. ANTIPSYCHOTICS [Concomitant]
     Route: 030
  6. CLOZARIL [Suspect]
     Dosage: 775 MG, UNK
     Route: 048
     Dates: start: 20110911

REACTIONS (4)
  - SOMNOLENCE [None]
  - INCORRECT DOSE ADMINISTERED [None]
  - BLOOD CREATINE PHOSPHOKINASE INCREASED [None]
  - SEDATION [None]
